FAERS Safety Report 10230909 (Version 1)
Quarter: 2014Q2

REPORT INFORMATION
  Report Type: Spontaneous
  Country: US (occurrence: None)
  Receive Date: 20140610
  Receipt Date: 20140610
  Transmission Date: 20141212
  Serious: Yes (Hospitalization, Disabling, Other)
  Sender: FDA-Public Use
  Company Number: None

PATIENT
  Age: 47 Year
  Sex: Female
  Weight: 85.28 kg

DRUGS (2)
  1. SAVELLA 50 MG TAB [Suspect]
     Indication: FIBROMYALGIA
     Route: 048
     Dates: start: 20140427, end: 20140609
  2. SAVELLA 50 MG TAB [Suspect]
     Indication: PAIN MANAGEMENT
     Route: 048
     Dates: start: 20140427, end: 20140609

REACTIONS (14)
  - Heart rate increased [None]
  - Chest pain [None]
  - Vision blurred [None]
  - Delusion [None]
  - Depression [None]
  - Hyperhidrosis [None]
  - Hot flush [None]
  - Blood urine present [None]
  - Renal pain [None]
  - Syncope [None]
  - Thinking abnormal [None]
  - Panic reaction [None]
  - Blood pressure increased [None]
  - Visual impairment [None]
